FAERS Safety Report 8690793 (Version 2)
Quarter: 2013Q4

REPORT INFORMATION
  Report Type: Spontaneous
  Country: IE (occurrence: IE)
  Receive Date: 20120728
  Receipt Date: 20131101
  Transmission Date: 20140711
  Serious: Yes (Other)
  Sender: FDA-Public Use
  Company Number: IE-009507513-1207IRL010187

PATIENT
  Sex: Female

DRUGS (4)
  1. ZISPIN [Suspect]
     Dosage: UNK
  2. IMURAN (AZATHIOPRINE SODIUM) [Concomitant]
  3. ZYPREXA [Concomitant]
  4. EFFEXOR [Concomitant]

REACTIONS (1)
  - Bone marrow failure [Unknown]
